FAERS Safety Report 5551526-9 (Version None)
Quarter: 2007Q4

REPORT INFORMATION
  Report Type: 
  Country: None (occurrence: None)
  Receive Date: 20071129
  Receipt Date: 20070424
  Transmission Date: 20080405
  Serious: Yes (Other)
  Sender: FDA-Public Use
  Company Number: US200702004410

PATIENT
  Age: 44 Year
  Sex: Female
  Weight: 74.8 kg

DRUGS (9)
  1. ZYPREXA [Suspect]
     Dosage: 10 MG, EACH EVENINIG
     Dates: start: 20030101, end: 20050901
  2. ARIPIPRAZOLE [Concomitant]
  3. QUETIAPINE FUMARATE [Concomitant]
  4. RISPERIDONE [Concomitant]
  5. HALOPERIDOL [Concomitant]
  6. LITHIUM CARBONATE [Concomitant]
  7. BUPROPION HCL [Concomitant]
  8. PROZAC [Concomitant]
  9. SERTRALINE [Concomitant]

REACTIONS (6)
  - DIABETES MELLITUS [None]
  - DIABETIC COMA [None]
  - DIABETIC KETOACIDOSIS [None]
  - HYPERGLYCAEMIA [None]
  - HYPERTENSION [None]
  - PANCREATITIS [None]
